FAERS Safety Report 9524196 (Version 1)
Quarter: 2013Q1

REPORT INFORMATION
  Report Type: Spontaneous
  Country: US (occurrence: None)
  Receive Date: 20130305
  Receipt Date: 20130305
  Transmission Date: 20140127
  Serious: Yes (Other)
  Sender: FDA-Public Use
  Company Number: 163-21880-12031029

PATIENT
  Age: 66 Year
  Sex: Male

DRUGS (9)
  1. REVLIMID [Suspect]
     Indication: PLASMA CELL MYELOMA
     Dosage: 10 MG, 1 IN 1 D, PO
     Route: 048
     Dates: start: 200802
  2. CRESTOR (ROSUVASTATIN) (UNKNOWN) [Concomitant]
  3. ASA (ACETYLSALICYLIC ACID) (UNKNOWN) [Concomitant]
  4. MAGNESIUM ASPARTATE (MAGNESIUM ASPARTATE) (UNKNOWN\) [Concomitant]
  5. COMPLEX B-100 (BECOSYM FORTE) (UNKNOWN) [Concomitant]
  6. BARACLUDE (ENTECAVIR) (UNKNOWN) [Concomitant]
  7. BENADRYL ALLERGY (BENADRYL ALLERGY) (UNKNOWN) [Concomitant]
  8. PEPCID AC (FAMOTIDINE) (UNKNOWN) [Concomitant]
  9. VITAMIN C CR (ASCORBIC ACID) (UNKNOWN) [Concomitant]

REACTIONS (1)
  - Dizziness [None]
